FAERS Safety Report 8343039-6 (Version None)
Quarter: 2012Q2

REPORT INFORMATION
  Report Type: 
  Country: None (occurrence: None)
  Receive Date: 20120508
  Receipt Date: 20120427
  Transmission Date: 20120825
  Serious: Yes (Other)
  Sender: FDA-Public Use
  Company Number: PHHY2012DE037020

PATIENT
  Age: 66 Year
  Sex: Female

DRUGS (1)
  1. FEMARA [Suspect]
     Dosage: UNK UKN, UNK

REACTIONS (4)
  - VENTRICULAR EXTRASYSTOLES [None]
  - ATRIAL FIBRILLATION [None]
  - TACHYARRHYTHMIA [None]
  - GAMMA-GLUTAMYLTRANSFERASE INCREASED [None]
